FAERS Safety Report 8832720 (Version 4)
Quarter: 2014Q2

REPORT INFORMATION
  Report Type: Spontaneous
  Country: US (occurrence: US)
  Receive Date: 20121010
  Receipt Date: 20140411
  Transmission Date: 20141212
  Serious: Yes (Hospitalization)
  Sender: FDA-Public Use
  Company Number: US-BAYER-2012-103570

PATIENT
  Age: 29 Year
  Sex: Female
  Weight: 71.2 kg

DRUGS (7)
  1. YASMIN [Suspect]
     Indication: ACNE
  2. OCELLA [Suspect]
     Indication: ACNE
     Dosage: UNK
     Dates: start: 20100922
  3. METOPROLOL [Concomitant]
  4. VICODIN [Concomitant]
  5. ATIVAN [Concomitant]
  6. LOPRESSOR [Concomitant]
  7. NEPHROCAPS [Concomitant]

REACTIONS (12)
  - Pulmonary embolism [None]
  - Deep vein thrombosis [None]
  - Off label use [None]
  - Injury [None]
  - Pain [None]
  - Fear of disease [None]
  - Emotional distress [None]
  - Anhedonia [None]
  - Pain [None]
  - Tachycardia [None]
  - Dyspnoea [None]
  - Blood pressure increased [None]
